FAERS Safety Report 5743571-5 (Version None)
Quarter: 2008Q2

REPORT INFORMATION
  Report Type: 
  Country: None (occurrence: None)
  Receive Date: 20080516
  Receipt Date: 20080505
  Transmission Date: 20081010
  Serious: Yes (Life-Threatening, Hospitalization)
  Sender: FDA-Public Use
  Company Number: 2008AL003975

PATIENT
  Age: 8 Month
  Sex: Female

DRUGS (5)
  1. DIAZEPAM [Suspect]
     Indication: STATUS EPILEPTICUS
     Dosage: 0.5 MG/KG; TID;
     Dates: end: 20080213
  2. PHENOBARBITAL TAB [Suspect]
     Indication: STATUS EPILEPTICUS
     Dosage: 10 MG/KG; IV
     Route: 042
     Dates: end: 20080213
  3. CLONAZEPAM [Suspect]
     Indication: STATUS EPILEPTICUS
     Dosage: 0.1 MG/KG;QD;IV
     Route: 042
     Dates: end: 20080213
  4. FOSPHENYTOIN SODIUM [Concomitant]
  5. THIOPENTAL SODIUM [Concomitant]

REACTIONS (4)
  - BRADYCARDIA [None]
  - CARDIAC ARREST [None]
  - CYTOLYTIC HEPATITIS [None]
  - HEPATIC FAILURE [None]
